FAERS Safety Report 7651216-2 (Version None)
Quarter: 2011Q3

REPORT INFORMATION
  Report Type: 
  Country: None (occurrence: None)
  Receive Date: 20110802
  Receipt Date: 20110727
  Transmission Date: 20111222
  Serious: Yes (Death, Other)
  Sender: FDA-Public Use
  Company Number: PHHY2011PL67677

PATIENT
  Age: 12 Year
  Sex: Male

DRUGS (5)
  1. ANTI-THYMOCYTE GLOBULIN NOS [Concomitant]
     Dosage: UNK
  2. CYCLOSPORINE [Suspect]
     Indication: STEM CELL TRANSPLANT
     Dosage: UNK
  3. TACROLIMUS [Suspect]
     Indication: STEM CELL TRANSPLANT
     Dosage: 4 MG DAILY
     Route: 042
  4. METHYLPREDNISOLONE [Concomitant]
     Dosage: 1 MG/KG, UNK
  5. GLUCOCORTICOSTEROIDS [Concomitant]
     Dosage: UNK

REACTIONS (6)
  - MULTI-ORGAN FAILURE [None]
  - APHASIA [None]
  - HEMIPLEGIA [None]
  - DRUG INEFFECTIVE [None]
  - ACUTE GRAFT VERSUS HOST DISEASE [None]
  - CEREBRAL HAEMORRHAGE [None]
